FAERS Safety Report 8711540 (Version 3)
Quarter: 2013Q4

REPORT INFORMATION
  Report Type: Spontaneous
  Country: FR (occurrence: FR)
  Receive Date: 20120807
  Receipt Date: 20131003
  Transmission Date: 20140711
  Serious: Yes (Life-Threatening, Hospitalization)
  Sender: FDA-Public Use
  Company Number: FR-GLAXOSMITHKLINE-B0818572A

PATIENT
  Age: 77 Year
  Sex: Female
  Weight: 83.7 kg

DRUGS (3)
  1. ARIXTRA [Suspect]
     Indication: PULMONARY EMBOLISM
     Dosage: 7.5MG PER DAY
     Route: 058
     Dates: start: 20120519, end: 20120523
  2. PREVISCAN [Suspect]
     Indication: PULMONARY EMBOLISM
     Dosage: 20MG PER DAY
     Route: 048
     Dates: start: 20120523, end: 20120531
  3. KARDEGIC [Concomitant]
     Indication: MYOCARDIAL ISCHAEMIA
     Route: 048

REACTIONS (5)
  - Pelvic haematoma [Recovered/Resolved with Sequelae]
  - Anaemia [Recovered/Resolved]
  - Abdominal pain lower [Recovering/Resolving]
  - Hydronephrosis [Recovering/Resolving]
  - Pyelocaliectasis [Recovering/Resolving]
